FAERS Safety Report 6800898-3 (Version None)
Quarter: 2010Q2

REPORT INFORMATION
  Report Type: 
  Country: None (occurrence: None)
  Receive Date: 20100624
  Receipt Date: 20100610
  Transmission Date: 20101027
  Serious: Yes (Hospitalization)
  Sender: FDA-Public Use
  Company Number: FR-002203

PATIENT
  Age: 15 Year
  Sex: Male

DRUGS (4)
  1. MINIRIN /00361902/ (DESMOPRESSIN ACETATE) ORAL LYOPHILISATE 120 UG [Suspect]
     Indication: DIABETES INSIPIDUS
     Dosage: 960 UG
     Route: 060
     Dates: start: 20100301, end: 20100607
  2. L-THYROXINE /00068001/ (LEVOTHYROXINE) [Concomitant]
  3. HYDROCORTISONE [Concomitant]
  4. HUMAN GROWTH HORMONE, RECOMBINANT (SOMATROPIN) [Concomitant]

REACTIONS (4)
  - EPILEPSY [None]
  - HYPONATRAEMIA [None]
  - LOSS OF CONSCIOUSNESS [None]
  - MEDICATION ERROR [None]
